FAERS Safety Report 9225265 (Version 1)
Quarter: 2013Q1

REPORT INFORMATION
  Report Type: Spontaneous
  Country: US (occurrence: None)
  Receive Date: 20120912
  Receipt Date: 20120912
  Transmission Date: 20140127
  Serious: Yes (Other)
  Sender: FDA-Public Use
  Company Number: 2012SP013615

PATIENT
  Age: 54 Year
  Sex: Male

DRUGS (3)
  1. PEG-INTRON [Suspect]
     Indication: HEPATITIS C
     Route: 058
     Dates: start: 20111021
  2. RIBAVIRIN [Suspect]
     Indication: HEPATITIS C
     Dates: start: 20111021, end: 20120502
  3. VICTRELIS [Suspect]
     Indication: HEPATITIS C
     Dates: start: 20111221

REACTIONS (3)
  - White blood cell count abnormal [None]
  - Anaemia [None]
  - Thrombocytopenia [None]
